FAERS Safety Report 4576542-5 (Version None)
Quarter: 2005Q1

REPORT INFORMATION
  Report Type: 
  Country: None (occurrence: None)
  Receive Date: 20050119
  Receipt Date: 20040322
  Transmission Date: 20050727
  Serious: Yes (Hospitalization)
  Sender: FDA-Public Use
  Company Number: A03200400880

PATIENT
  Age: 61 Year
  Sex: Female
  Weight: 87.0906 kg

DRUGS (13)
  1. PLAVIX [Suspect]
     Indication: MYOCARDIAL INFARCTION
     Dosage: 75 MG QD - ORAL
     Route: 048
     Dates: start: 20010501
  2. ACETYLSALICYLIC ACID [Concomitant]
  3. SIMVASTATIN [Concomitant]
  4. RAMIPRIL [Concomitant]
  5. DIGOXIN [Concomitant]
  6. ESOMEPRAZOLE [Concomitant]
  7. SPIRONOLACTONE [Concomitant]
  8. FUROSEMIDE [Concomitant]
  9. CARVEDILOL [Concomitant]
  10. POTASSIUM CHLORIDE [Concomitant]
  11. GABAPENTIN [Concomitant]
  12. INSULIN [Concomitant]
  13. FLUOXETINE HCL [Concomitant]

REACTIONS (4)
  - ASTHENIA [None]
  - GASTROINTESTINAL HAEMORRHAGE [None]
  - HAEMATOCHEZIA [None]
  - HAEMOGLOBIN DECREASED [None]
